FAERS Safety Report 6772061-6 (Version None)
Quarter: 2010Q2

REPORT INFORMATION
  Report Type: 
  Country: None (occurrence: None)
  Receive Date: 20100616
  Receipt Date: 20100608
  Transmission Date: 20101027
  Serious: Yes (Other)
  Sender: FDA-Public Use
  Company Number: A0863773A

PATIENT
  Age: 78 Year
  Sex: Male

DRUGS (5)
  1. FLOVENT [Suspect]
     Indication: ASTHMA
     Dosage: 110MCG TWICE PER DAY
     Route: 055
     Dates: start: 20100603
  2. PROAIR HFA [Concomitant]
     Dosage: 2PUFF SIX TIMES PER DAY
  3. ZYLOPRIM [Concomitant]
  4. ETODOLAC [Concomitant]
  5. LISINOPRIL [Concomitant]

REACTIONS (5)
  - COUGH [None]
  - PULMONARY CONGESTION [None]
  - RESPIRATORY TRACT CONGESTION [None]
  - SECRETION DISCHARGE [None]
  - UPPER RESPIRATORY TRACT CONGESTION [None]
